FAERS Safety Report 21062800 (Version 1)
Quarter: 2022Q3

REPORT INFORMATION
  Report Type: Spontaneous
  Country: IN (occurrence: IN)
  Receive Date: 20220711
  Receipt Date: 20220711
  Transmission Date: 20221026
  Serious: Yes (Other)
  Sender: FDA-Public Use
  Company Number: IN-CIPLA LTD.-2022IN04305

PATIENT
  Age: 18 Year
  Sex: Female

DRUGS (7)
  1. SERTRALINE [Suspect]
     Active Substance: SERTRALINE HYDROCHLORIDE
     Indication: Hepato-lenticular degeneration
     Dosage: UNK
     Route: 065
  2. RISPERIDONE [Suspect]
     Active Substance: RISPERIDONE
     Indication: Schizophrenia
     Dosage: UNK
     Route: 065
  3. LORAZEPAM [Suspect]
     Active Substance: LORAZEPAM
     Indication: Schizophrenia
     Dosage: UNK
     Route: 065
  4. OLANZAPINE [Concomitant]
     Active Substance: OLANZAPINE
     Indication: Hepato-lenticular degeneration
     Dosage: 2.5 MG
     Route: 065
  5. OLANZAPINE [Concomitant]
     Active Substance: OLANZAPINE
     Dosage: 10 MG, PER DAY
     Route: 065
  6. PENICILLAMINE [Concomitant]
     Active Substance: PENICILLAMINE
     Indication: Hepato-lenticular degeneration
     Dosage: UNK
     Route: 065
  7. ZINC ACETATE [Concomitant]
     Active Substance: ZINC ACETATE
     Indication: Stevens-Johnson syndrome
     Dosage: UNK
     Route: 065

REACTIONS (2)
  - Therapy non-responder [Unknown]
  - Mania [Recovering/Resolving]
